FAERS Safety Report 8036388-2 (Version None)
Quarter: 2012Q1

REPORT INFORMATION
  Report Type: 
  Country: None (occurrence: None)
  Receive Date: 20120111
  Receipt Date: 20120109
  Transmission Date: 20120608
  Serious: Yes (Death, Other)
  Sender: FDA-Public Use
  Company Number: PHHY2012FR001242

PATIENT
  Age: 70 Year
  Sex: Male

DRUGS (7)
  1. ONBREZ [Suspect]
     Indication: ASTHMA
  2. ONBREZ [Suspect]
     Indication: RESPIRATORY FAILURE
     Dosage: UNK
     Dates: start: 20111201
  3. LASIX [Concomitant]
  4. ONBREZ [Suspect]
     Indication: CHRONIC OBSTRUCTIVE PULMONARY DISEASE
  5. ANTICOAGULANTS [Concomitant]
  6. VENTOLIN [Concomitant]
  7. CORTISONE ACETATE [Concomitant]

REACTIONS (4)
  - RESPIRATORY FAILURE [None]
  - PULMONARY EMBOLISM [None]
  - CARDIAC FAILURE [None]
  - HAEMOPTYSIS [None]
